FAERS Safety Report 19773428 (Version 1)
Quarter: 2021Q3

REPORT INFORMATION
  Report Type: Report from Study
  Country: None (occurrence: US)
  Receive Date: 20210901
  Receipt Date: 20210901
  Transmission Date: 20211014
  Serious: Yes (Other)
  Sender: FDA-Public Use
  Company Number: US-ABBVIE-21K-163-4057613-00

PATIENT
  Age: 35 Year
  Sex: Male

DRUGS (1)
  1. HUMIRA [Suspect]
     Active Substance: ADALIMUMAB
     Indication: CROHN^S DISEASE
     Route: 058

REACTIONS (12)
  - Unevaluable event [Recovered/Resolved]
  - Feeling guilty [Unknown]
  - Suicidal ideation [Recovered/Resolved]
  - Weight decreased [Unknown]
  - Haemorrhage [Unknown]
  - Memory impairment [Unknown]
  - Impaired quality of life [Unknown]
  - Feeling abnormal [Unknown]
  - Discomfort [Unknown]
  - Injection site injury [Unknown]
  - Anxiety [Recovered/Resolved]
  - Emotional distress [Unknown]

NARRATIVE: CASE EVENT DATE: 20210823
